FAERS Safety Report 19378532 (Version 1)
Quarter: 2021Q2

REPORT INFORMATION
  Report Type: Spontaneous
  Country: PL (occurrence: PL)
  Receive Date: 20210606
  Receipt Date: 20210606
  Transmission Date: 20210717
  Serious: No
  Sender: FDA-Public Use
  Company Number: PL-LUPIN PHARMACEUTICALS INC.-2021-08671

PATIENT
  Sex: Female

DRUGS (2)
  1. CLOBETASOL [Suspect]
     Active Substance: CLOBETASOL
     Indication: GRANULOMA ANNULARE
     Dosage: UNK
     Route: 061
  2. IMIQUIMOD. [Concomitant]
     Active Substance: IMIQUIMOD
     Indication: GRANULOMA ANNULARE
     Dosage: UNK APPLIED ONCE DAILY FOR 10?12 HOURS OVERNIGHT AND THEN WASHED OFF
     Route: 061

REACTIONS (1)
  - Drug ineffective [Unknown]
